FAERS Safety Report 15976514 (Version 2)
Quarter: 2019Q1

REPORT INFORMATION
  Report Type: Report from Study
  Country: DE (occurrence: DE)
  Receive Date: 20190218
  Receipt Date: 20190311
  Transmission Date: 20190418
  Serious: Yes (Other)
  Sender: FDA-Public Use
  Company Number: PHHY2019DE032144

PATIENT
  Sex: Female

DRUGS (1)
  1. GILENYA [Suspect]
     Active Substance: FINGOLIMOD HYDROCHLORIDE
     Indication: PATERNAL EXPOSURE DURING PREGNANCY
     Dosage: PATERNAL DOSE: 0.5 MG, QD
     Route: 050

REACTIONS (2)
  - Exposure via partner [Unknown]
  - Premature delivery [Unknown]

NARRATIVE: CASE EVENT DATE: 2018
